FAERS Safety Report 12900382 (Version 2)
Quarter: 2016Q4

REPORT INFORMATION
  Report Type: Spontaneous
  Country: US (occurrence: US)
  Receive Date: 20161101
  Receipt Date: 20161202
  Transmission Date: 20170207
  Serious: Yes (Other)
  Sender: FDA-Public Use
  Company Number: US-ELI_LILLY_AND_COMPANY-US201607010624

PATIENT
  Sex: Female

DRUGS (12)
  1. CYMBALTA [Suspect]
     Active Substance: DULOXETINE HYDROCHLORIDE
     Dosage: 60 MG, QD
     Route: 048
     Dates: start: 20130806, end: 20141030
  2. IPRATROPIUM BROMIDE. [Concomitant]
     Active Substance: IPRATROPIUM BROMIDE
     Dosage: UNK, BID
     Route: 065
  3. DULERA [Concomitant]
     Active Substance: FORMOTEROL FUMARATE DIHYDRATE\MOMETASONE FUROATE
     Dosage: 2 DF, BID
     Route: 055
  4. VISTARIL                           /00058403/ [Concomitant]
     Indication: ANXIETY
     Dosage: 25 MG, QID
     Route: 065
  5. LASIX [Concomitant]
     Active Substance: FUROSEMIDE
     Indication: PERIPHERAL SWELLING
     Dosage: 20 MG, QD
     Route: 065
  6. OMEPRAZOLE. [Concomitant]
     Active Substance: OMEPRAZOLE
     Indication: GASTRIC DISORDER
     Dosage: 40 MG, QD
     Route: 065
  7. ACETAMINOPHEN AND CODEINE [Concomitant]
     Active Substance: ACETAMINOPHEN\CODEINE PHOSPHATE
     Indication: PAIN
     Dosage: 1 DF, PRN
     Route: 065
  8. CYMBALTA [Suspect]
     Active Substance: DULOXETINE HYDROCHLORIDE
     Indication: PRODUCT USED FOR UNKNOWN INDICATION
     Dosage: UNK, UNKNOWN
     Route: 065
  9. CHLORTALIDONE [Concomitant]
     Active Substance: CHLORTHALIDONE
     Dosage: 25 MG, QD
     Route: 065
  10. CYMBALTA [Suspect]
     Active Substance: DULOXETINE HYDROCHLORIDE
     Dosage: 60 MG, QD
     Route: 048
     Dates: end: 201203
  11. KLOR-CON [Concomitant]
     Active Substance: POTASSIUM CHLORIDE
     Dosage: 10 MEQ, QD
     Route: 065
  12. PRAMIPEXOLE DIHYDROCHLORIDE. [Concomitant]
     Active Substance: PRAMIPEXOLE DIHYDROCHLORIDE
     Indication: RESTLESS LEGS SYNDROME
     Dosage: 1 MG, QD
     Route: 065

REACTIONS (36)
  - Fatigue [Unknown]
  - Pollakiuria [Unknown]
  - Anaemia [Unknown]
  - Hyperhidrosis [Unknown]
  - Vertigo [Unknown]
  - Affect lability [Unknown]
  - Disturbance in attention [Unknown]
  - Irritability [Unknown]
  - Dizziness [Unknown]
  - Drug withdrawal syndrome [Unknown]
  - Dysphoria [Unknown]
  - Hypomania [Unknown]
  - Tinnitus [Unknown]
  - Mood swings [Unknown]
  - Paraesthesia [Unknown]
  - Sensory disturbance [Unknown]
  - Lethargy [Unknown]
  - Suicide attempt [Unknown]
  - Emotional distress [Unknown]
  - Anxiety [Unknown]
  - Peripheral swelling [Unknown]
  - Joint swelling [Unknown]
  - Back pain [Unknown]
  - Anhedonia [Unknown]
  - Nervousness [Unknown]
  - Pain in extremity [Unknown]
  - Nausea [Unknown]
  - Tremor [Unknown]
  - Agitation [Unknown]
  - Suicidal ideation [Unknown]
  - Insomnia [Unknown]
  - Migraine with aura [Unknown]
  - Arthralgia [Unknown]
  - Depression [Unknown]
  - Hot flush [Unknown]
  - Confusional state [Unknown]
